FAERS Safety Report 5106601-X (Version None)
Quarter: 2006Q3

REPORT INFORMATION
  Report Type: 
  Country: None (occurrence: None)
  Receive Date: 20060913
  Receipt Date: 20060825
  Transmission Date: 20061208
  Serious: Yes (Other)
  Sender: FDA-Public Use
  Company Number: FR_051007250

PATIENT
  Age: 75 Year
  Sex: Female
  Weight: 49 kg

DRUGS (7)
  1. FORTEO [Suspect]
     Indication: OSTEOPOROSIS
     Dosage: 20  UG, DAILY (1/D), SUBCUTANEOUS
     Route: 058
     Dates: start: 20050908
  2. LEVOTHYROXINE SODIUM [Concomitant]
  3. FENOFIBRATE [Concomitant]
  4. STABLON (TIANEPTINE) [Concomitant]
  5. LEXOMIL (BROMAZEPAM) [Concomitant]
  6. CALCIDOSE (CALCIUM CARBONATE) [Concomitant]
  7. FORTEO PEN, 250MCG/ML (3ML) (FORTEO PEN 250MCG/ML (3ML)) PEN, DISPOSAB [Concomitant]

REACTIONS (11)
  - BREAST CANCER FEMALE [None]
  - BRONCHOPNEUMONIA [None]
  - CONDITION AGGRAVATED [None]
  - DEPRESSION [None]
  - DIARRHOEA [None]
  - HYPERCALCIURIA [None]
  - MALIGNANT NEOPLASM PROGRESSION [None]
  - METASTASES TO PLEURA [None]
  - POLLAKIURIA [None]
  - URINARY INCONTINENCE [None]
  - WEIGHT DECREASED [None]
